FAERS Safety Report 5097757-6 (Version None)
Quarter: 2006Q3

REPORT INFORMATION
  Report Type: 
  Country: None (occurrence: None)
  Receive Date: 20060905
  Receipt Date: 20060828
  Transmission Date: 20061208
  Serious: Yes (Death, Life-Threatening)
  Sender: FDA-Public Use
  Company Number: WAES 0608BRA00058

PATIENT
  Age: 54 Year
  Sex: Female

DRUGS (1)
  1. CANCIDAS [Suspect]
     Indication: SYSTEMIC CANDIDA
     Dosage: IV
     Route: 042
     Dates: start: 20060822

REACTIONS (6)
  - ABDOMINAL TENDERNESS [None]
  - ACUTE RESPIRATORY DISTRESS SYNDROME [None]
  - BOWEL SOUNDS ABNORMAL [None]
  - RESPIRATORY FAILURE [None]
  - SEPTIC SHOCK [None]
  - THERAPY NON-RESPONDER [None]
